FAERS Safety Report 4327966-2 (Version None)
Quarter: 2004Q1

REPORT INFORMATION
  Report Type: 
  Country: None (occurrence: None)
  Receive Date: 20040325
  Receipt Date: 20040312
  Transmission Date: 20041129
  Serious: Yes (Hospitalization)
  Sender: FDA-Public Use
  Company Number: 04-000186

PATIENT
  Sex: Female

DRUGS (1)
  1. FEMRING(ESTRADIOL ACETATE) VAGINAL RING [Suspect]
     Dosage: QD, VAGINAL
     Route: 067
     Dates: start: 20031217, end: 20040101

REACTIONS (2)
  - ABDOMINAL PAIN UPPER [None]
  - COLON OPERATION [None]
